FAERS Safety Report 6538701-1 (Version None)
Quarter: 2010Q1

REPORT INFORMATION
  Report Type: 
  Country: None (occurrence: None)
  Receive Date: 20100113
  Receipt Date: 20100113
  Transmission Date: 20100710
  Serious: Yes (Other)
  Sender: FDA-Public Use
  Company Number: None

PATIENT
  Age: 56 Year
  Sex: Female
  Weight: 79.3795 kg

DRUGS (2)
  1. ZICAM NASAL SWABS UNKNOWN UNKNOWN [Suspect]
     Indication: NASOPHARYNGITIS
     Dosage: ONE SWAB 2-3 TIMES DAILY NASAL 2-3 DAYS
     Route: 045
     Dates: start: 20050203, end: 20050206
  2. ZICAM NASAL SWABS [Concomitant]

REACTIONS (4)
  - AGEUSIA [None]
  - ANOSMIA [None]
  - RHINORRHOEA [None]
  - SINUSITIS [None]
